FAERS Safety Report 6409314-7 (Version None)
Quarter: 2009Q4

REPORT INFORMATION
  Report Type: 
  Country: None (occurrence: None)
  Receive Date: 20091019
  Receipt Date: 20091019
  Transmission Date: 20100525
  Serious: Yes (Hospitalization)
  Sender: FDA-Public Use
  Company Number: None

PATIENT
  Age: 2 Day
  Sex: Male

DRUGS (1)
  1. GENTAMICIN SULFATE [Suspect]
     Indication: PROPHYLAXIS
     Dosage: ONCE OPHTHALMIC
     Dates: start: 20091004

REACTIONS (4)
  - BLISTER [None]
  - DERMATITIS CONTACT [None]
  - ERYTHEMA [None]
  - PERIORBITAL DISORDER [None]
